FAERS Safety Report 17258525 (Version 2)
Quarter: 2020Q1

REPORT INFORMATION
  Report Type: Report from Study
  Country: US (occurrence: US)
  Receive Date: 20200110
  Receipt Date: 20200127
  Transmission Date: 20200409
  Serious: Yes (Life-Threatening)
  Sender: FDA-Public Use
  Company Number: US-GILEAD-2018-0344932

PATIENT
  Age: 67 Year
  Sex: Male
  Weight: 78.1 kg

DRUGS (89)
  1. SODIUM PHOSPHATE [Concomitant]
     Active Substance: SODIUM PHOSPHATE
     Dosage: 10,OTHER,DAILY
     Route: 041
     Dates: start: 20170921, end: 20170921
  2. VANCOMYCIN [Concomitant]
     Active Substance: VANCOMYCIN
     Dosage: 2250,MG,DAILY
     Route: 041
     Dates: start: 20170923, end: 20170924
  3. METOPROLOL. [Concomitant]
     Active Substance: METOPROLOL
     Dosage: 25,MG,THREE TIMES DAILY
     Route: 048
     Dates: start: 20170927, end: 20171001
  4. RED BLOOD CELLS [Concomitant]
     Active Substance: HUMAN RED BLOOD CELL
     Dosage: 1,OTHER,DAILY
     Route: 041
     Dates: start: 20170923, end: 20170923
  5. ONDANSETRON [Concomitant]
     Active Substance: ONDANSETRON
     Dosage: 16,MG,DAILY
     Route: 048
     Dates: start: 20170914, end: 20170916
  6. PANTOPRAZOLE [Concomitant]
     Active Substance: PANTOPRAZOLE
     Dosage: 40,MG,DAILY
     Route: 048
     Dates: start: 20170821, end: 20170909
  7. TRIAMCINOLONE [Concomitant]
     Active Substance: TRIAMCINOLONE
     Dosage: 1,MG,TWICE DAILY
     Route: 061
     Dates: start: 20170821, end: 20170914
  8. SODIUM CHLORIDE. [Concomitant]
     Active Substance: SODIUM CHLORIDE
     Dosage: 500,ML,DAILY
     Route: 041
     Dates: start: 20170922, end: 20170922
  9. TRAMADOL. [Concomitant]
     Active Substance: TRAMADOL
     Dosage: 50,MG,DAILY
     Route: 048
     Dates: start: 20170920, end: 20170920
  10. TOCILIZUMAB. [Concomitant]
     Active Substance: TOCILIZUMAB
     Dosage: 800,MG,TWICE DAILY
     Route: 041
     Dates: start: 20170923, end: 20170923
  11. PLATELETS [Concomitant]
     Active Substance: HUMAN PLATELET, ALLOGENIC
     Dosage: 3,OTHER,THREE TIMES DAILY
     Route: 041
     Dates: start: 20170924, end: 20170924
  12. MORPHINE [MORPHINE SULFATE] [Concomitant]
     Dosage: 7.5,MG,AS NECESSARY
     Route: 048
     Dates: start: 20170923, end: 20171009
  13. GABAPENTIN. [Concomitant]
     Active Substance: GABAPENTIN
     Dosage: 300,MG,THREE TIMES DAILY
     Route: 048
     Dates: start: 20170821, end: 20171004
  14. CHOLECALCIFEROL [Concomitant]
     Active Substance: CHOLECALCIFEROL
     Dosage: 1,000,OTHER,DAILY
     Route: 048
     Dates: start: 20170821, end: 20181016
  15. METOPROLOL XL SANDOZ [Concomitant]
     Active Substance: METOPROLOL SUCCINATE
     Dosage: 25,MG,DAILY
     Route: 048
     Dates: start: 20171010, end: 20181016
  16. SODIUM CHLORIDE. [Concomitant]
     Active Substance: SODIUM CHLORIDE
     Dosage: 1,000,ML,OTHER
     Route: 041
     Dates: start: 20170920, end: 20170921
  17. SODIUM CHLORIDE. [Concomitant]
     Active Substance: SODIUM CHLORIDE
     Dosage: 1000,ML,DAILY
     Route: 041
     Dates: start: 20170923, end: 20170923
  18. DOCUSATE [Concomitant]
     Active Substance: DOCUSATE
     Dosage: 100,MG,AS NECESSARY
     Route: 048
     Dates: start: 20170919, end: 20171001
  19. PLATELETS [Concomitant]
     Active Substance: HUMAN PLATELET, ALLOGENIC
     Dosage: 1,OTHER,DAILY
     Route: 041
     Dates: start: 20170925, end: 20170925
  20. AXICABTAGENE CILOLEUCEL [Suspect]
     Active Substance: AXICABTAGENE CILOLEUCEL
     Indication: NON-HODGKIN^S LYMPHOMA
     Dosage: 2.0 X 10^6 CAR-T CELLS/KG
     Route: 042
     Dates: start: 20170919, end: 20170919
  21. ACETAMINOPHEN. [Concomitant]
     Active Substance: ACETAMINOPHEN
     Dosage: 650,MG,OTHER
     Route: 048
     Dates: start: 20170920, end: 20170920
  22. METOPROLOL XL SANDOZ [Concomitant]
     Active Substance: METOPROLOL SUCCINATE
     Dosage: 25,MG,DAILY
     Route: 048
     Dates: start: 20170821, end: 20170921
  23. ONDANSETRON [Concomitant]
     Active Substance: ONDANSETRON
     Dosage: 8,MG,DAILY
     Route: 048
     Dates: start: 20170821, end: 20170913
  24. ONDANSETRON [Concomitant]
     Active Substance: ONDANSETRON
     Dosage: 4,MG,DAILY
     Route: 048
     Dates: start: 20171010, end: 20181016
  25. MAGNESIUM SULFATE. [Concomitant]
     Active Substance: MAGNESIUM SULFATE
     Dosage: 2,G,OTHER
     Route: 041
     Dates: start: 20170916, end: 20170916
  26. TRAMADOL. [Concomitant]
     Active Substance: TRAMADOL
     Dosage: 50,MG,AS NECESSARY
     Route: 048
     Dates: start: 20170923, end: 20170923
  27. SODIUM PHOSPHATE [Concomitant]
     Active Substance: SODIUM PHOSPHATE
     Dosage: 10,OTHER,TWICE DAILY
     Route: 041
     Dates: start: 20170923, end: 20170923
  28. CEFEPIME [Concomitant]
     Active Substance: CEFEPIME HYDROCHLORIDE
     Dosage: 2,G,THREE TIMES DAILY
     Route: 041
     Dates: start: 20170921, end: 20170929
  29. POTASSIUM PHOSPHATE [POTASSIUM PHOSPHATE DIBASIC] [Concomitant]
     Dosage: 10,OTHER,DAILY
     Route: 041
     Dates: start: 20170922, end: 20170922
  30. FILGRASTIM [Concomitant]
     Active Substance: FILGRASTIM
     Dosage: 480,OTHER,DAILY
     Route: 058
     Dates: start: 20170923, end: 20170929
  31. FUROSEMIDE. [Concomitant]
     Active Substance: FUROSEMIDE
     Dosage: 20,MG,DAILY
     Route: 048
     Dates: start: 20170923, end: 20170923
  32. RED BLOOD CELLS [Concomitant]
     Active Substance: HUMAN RED BLOOD CELL
     Dosage: 1,OTHER,DAILY
     Route: 041
     Dates: start: 20171005, end: 20171005
  33. ONDANSETRON [Concomitant]
     Active Substance: ONDANSETRON
     Dosage: 4,MG,AS NECESSARY
     Route: 041
     Dates: start: 20170919, end: 20171009
  34. SODIUM CHLORIDE. [Concomitant]
     Active Substance: SODIUM CHLORIDE
     Dosage: 1000,ML,TWICE DAILY
     Route: 041
     Dates: start: 20170914, end: 20171016
  35. ACYCLOVIR [ACICLOVIR] [Concomitant]
     Active Substance: ACYCLOVIR
     Dosage: 800,MG,TWICE DAILY
     Route: 048
     Dates: start: 20170918, end: 20170918
  36. ACYCLOVIR [ACICLOVIR] [Concomitant]
     Active Substance: ACYCLOVIR
     Dosage: 400,MG,OTHER
     Route: 048
     Dates: start: 20171010, end: 20181016
  37. KEPPRA [Concomitant]
     Active Substance: LEVETIRACETAM
     Dosage: 500,MG,TWICE DAILY
     Route: 048
     Dates: start: 20170918, end: 20171109
  38. POSACONAZOLE [Concomitant]
     Active Substance: POSACONAZOLE
     Dosage: 300,MG,TWICE DAILY
     Route: 048
     Dates: start: 20170918, end: 20170919
  39. POSACONAZOLE [Concomitant]
     Active Substance: POSACONAZOLE
     Dosage: 300,MG,DAILY
     Route: 048
     Dates: start: 20170920, end: 20170928
  40. TOCILIZUMAB. [Concomitant]
     Active Substance: TOCILIZUMAB
     Dosage: 800,MG,DAILY
     Route: 041
     Dates: start: 20170921, end: 20170921
  41. OXYGEN. [Concomitant]
     Active Substance: OXYGEN
     Dosage: 6000,ML,OTHER
     Route: 055
     Dates: start: 20170924, end: 20170924
  42. METOPROLOL. [Concomitant]
     Active Substance: METOPROLOL
     Dosage: 5,MG,OTHER
     Route: 041
     Dates: start: 20170923, end: 20170923
  43. METOPROLOL. [Concomitant]
     Active Substance: METOPROLOL
     Dosage: 2.5,MG,OTHER
     Route: 041
     Dates: start: 20170924, end: 20170924
  44. METOPROLOL. [Concomitant]
     Active Substance: METOPROLOL
     Dosage: 37.5,MG,TWICE DAILY
     Route: 048
     Dates: start: 20170925, end: 20170925
  45. FLUDARABINE [Suspect]
     Active Substance: FLUDARABINE PHOSPHATE
     Indication: BONE MARROW CONDITIONING REGIMEN
     Dosage: 30 MG/M2, QD
     Route: 042
     Dates: start: 20170914, end: 20170916
  46. ACETAMINOPHEN. [Concomitant]
     Active Substance: ACETAMINOPHEN
     Dosage: 650,MG,AS NECESSARY
     Route: 048
     Dates: start: 20170920, end: 20171009
  47. FEXOFENADINE [Concomitant]
     Active Substance: FEXOFENADINE HYDROCHLORIDE
     Dosage: 90,MG,DAILY
     Route: 048
     Dates: start: 20170821, end: 20170914
  48. ACYCLOVIR [ACICLOVIR] [Concomitant]
     Active Substance: ACYCLOVIR
     Dosage: 800,MG,TWICE DAILY
     Route: 048
     Dates: start: 20170920, end: 20171009
  49. MAGNESIUM SULFATE. [Concomitant]
     Active Substance: MAGNESIUM SULFATE
     Dosage: 2,G,AS NECESSARY
     Route: 041
     Dates: start: 20170920, end: 20171009
  50. LEVOFLOXACIN. [Concomitant]
     Active Substance: LEVOFLOXACIN
     Dosage: 500,MG,DAILY
     Route: 048
     Dates: start: 20170918, end: 20170922
  51. CETIRIZINE [Concomitant]
     Active Substance: CETIRIZINE HYDROCHLORIDE
     Dosage: 10,MG,DAILY
     Route: 048
     Dates: start: 20170919, end: 20171005
  52. MORPHINE [Concomitant]
     Active Substance: MORPHINE
     Dosage: 2,MG,AS NECESSARY
     Route: 041
     Dates: start: 20170920, end: 20171004
  53. TOCILIZUMAB. [Concomitant]
     Active Substance: TOCILIZUMAB
     Dosage: 800,MG,DAILY
     Route: 041
     Dates: start: 20170924, end: 20170924
  54. PLATELETS [Concomitant]
     Active Substance: HUMAN PLATELET, ALLOGENIC
     Dosage: 1,OTHER,DAILY
     Route: 041
     Dates: start: 20170927, end: 20170927
  55. FUROSEMIDE. [Concomitant]
     Active Substance: FUROSEMIDE
     Dosage: 20,MG,DAILY
     Route: 041
     Dates: start: 20170925, end: 20170925
  56. SYNTHROID [Concomitant]
     Active Substance: LEVOTHYROXINE SODIUM
     Dosage: 50,OTHER,DAILY
     Route: 048
     Dates: start: 20170821, end: 20181016
  57. LORAZEPAM. [Concomitant]
     Active Substance: LORAZEPAM
     Dosage: 0.5,MG,AS NECESSARY
     Route: 050
     Dates: start: 20170918, end: 20170925
  58. METOPROLOL XL SANDOZ [Concomitant]
     Active Substance: METOPROLOL SUCCINATE
     Dosage: 75,MG,DAILY
     Route: 048
     Dates: start: 20171002, end: 20171008
  59. BACLOFEN. [Concomitant]
     Active Substance: BACLOFEN
     Dosage: 10,MG,THREE TIMES DAILY
     Route: 048
     Dates: start: 20170821, end: 20170918
  60. BACLOFEN. [Concomitant]
     Active Substance: BACLOFEN
     Dosage: 5,MG,TWICE DAILY
     Route: 048
     Dates: start: 20170926, end: 20171009
  61. BACLOFEN. [Concomitant]
     Active Substance: BACLOFEN
     Dosage: 10,MG,TWICE DAILY
     Route: 048
     Dates: start: 20171010, end: 20181016
  62. POLYETHYLENE GLYCOL [Concomitant]
     Active Substance: POLYETHYLENE GLYCOLS
     Dosage: 17,G,AS NECESSARY
     Route: 048
     Dates: start: 20170919, end: 20171009
  63. TYLENOL [Concomitant]
     Active Substance: ACETAMINOPHEN
     Dosage: 650,MG,DAILY
     Route: 048
     Dates: start: 20170920, end: 20171009
  64. OXYGEN. [Concomitant]
     Active Substance: OXYGEN
     Dosage: 2000,ML,OTHER
     Route: 055
     Dates: start: 20170922, end: 20170924
  65. OXYGEN. [Concomitant]
     Active Substance: OXYGEN
     Dosage: 4000,ML,OTHER
     Route: 055
     Dates: start: 20170924, end: 20170926
  66. PLATELETS [Concomitant]
     Active Substance: HUMAN PLATELET, ALLOGENIC
     Dosage: 1,OTHER,DAILY
     Route: 041
     Dates: start: 20170922, end: 20170923
  67. VANCOMYCIN [Concomitant]
     Active Substance: VANCOMYCIN
     Dosage: 1,G,TWICE DAILY
     Route: 041
     Dates: start: 20170925, end: 20170928
  68. METOPROLOL. [Concomitant]
     Active Substance: METOPROLOL
     Dosage: 12.5,MG,DAILY
     Route: 048
     Dates: start: 20170923, end: 20170924
  69. METOPROLOL. [Concomitant]
     Active Substance: METOPROLOL
     Dosage: 5,MG,OTHER
     Route: 041
     Dates: start: 20170926, end: 20170926
  70. CYCLOPHOSPHAMIDE. [Suspect]
     Active Substance: CYCLOPHOSPHAMIDE
     Indication: BONE MARROW CONDITIONING REGIMEN
     Dosage: 500 MG/M2, QD
     Route: 042
     Dates: start: 20170914, end: 20170916
  71. CYMBALTA [Concomitant]
     Active Substance: DULOXETINE HYDROCHLORIDE
     Dosage: 60,MG,DAILY
     Route: 048
     Dates: start: 20170821, end: 20181016
  72. PAXIL [Concomitant]
     Active Substance: PAROXETINE HYDROCHLORIDE
     Dosage: 10,MG,DAILY
     Route: 048
     Dates: start: 20170821, end: 20181016
  73. GABAPENTIN. [Concomitant]
     Active Substance: GABAPENTIN
     Dosage: 300,MG,THREE TIMES DAILY
     Route: 048
     Dates: start: 20171010, end: 20181016
  74. ACETAMINOPHEN. [Concomitant]
     Active Substance: ACETAMINOPHEN
     Dosage: 650,MG,OTHER
     Route: 048
     Dates: start: 20170919, end: 20170919
  75. FOLIC ACID. [Concomitant]
     Active Substance: FOLIC ACID
     Dosage: 1,MG,DAILY
     Route: 048
     Dates: start: 20170821, end: 20181016
  76. BACLOFEN. [Concomitant]
     Active Substance: BACLOFEN
     Dosage: 10,MG,TWICE DAILY
     Route: 048
     Dates: start: 20170919, end: 20170925
  77. PANTOPRAZOLE [Concomitant]
     Active Substance: PANTOPRAZOLE
     Dosage: 20,MG,DAILY
     Route: 048
     Dates: start: 20171010, end: 20181016
  78. ACYCLOVIR [ACICLOVIR] [Concomitant]
     Active Substance: ACYCLOVIR
     Dosage: 400,MG,THREE TIMES DAILY
     Route: 048
     Dates: start: 20170914, end: 20170917
  79. ACYCLOVIR [ACICLOVIR] [Concomitant]
     Active Substance: ACYCLOVIR
     Dosage: 400,MG,OTHER
     Route: 048
     Dates: start: 20170919, end: 20170919
  80. ALLOPURINOL. [Concomitant]
     Active Substance: ALLOPURINOL
     Dosage: 300,MG,DAILY
     Route: 048
     Dates: start: 20170914, end: 20170919
  81. COMPAZINE [PROCHLORPERAZINE EDISYLATE] [Concomitant]
     Active Substance: PROCHLORPERAZINE EDISYLATE
     Dosage: 10,MG,FOUR TIMES DAILY
     Route: 048
     Dates: start: 20170918, end: 20171001
  82. HEPARIN [Concomitant]
     Active Substance: HEPARIN SODIUM
     Dosage: 2,000,OTHER,DAILY
     Route: 041
     Dates: start: 20170919, end: 20171009
  83. POTASSIUM CHLORIDE. [Concomitant]
     Active Substance: POTASSIUM CHLORIDE
     Dosage: 20,OTHER,DAILY
     Route: 041
     Dates: start: 20170921, end: 20170921
  84. ACETAMINOPHEN. [Concomitant]
     Active Substance: ACETAMINOPHEN
     Dosage: 500,MG,AS NECESSARY
     Route: 048
     Dates: start: 20170821, end: 20170917
  85. ACETAMINOPHEN. [Concomitant]
     Active Substance: ACETAMINOPHEN
     Dosage: 325,MG,AS NECESSARY
     Route: 048
     Dates: start: 20170918, end: 20170919
  86. LORAZEPAM. [Concomitant]
     Active Substance: LORAZEPAM
     Dosage: 0.5,MG,DAILY
     Route: 048
     Dates: start: 20170821, end: 20170914
  87. PROCHLORPERAZINE. [Concomitant]
     Active Substance: PROCHLORPERAZINE
     Dosage: 10,MG,AS NECESSARY
     Route: 048
     Dates: start: 20170821, end: 20171001
  88. DIPHENHYDRAMINE. [Concomitant]
     Active Substance: DIPHENHYDRAMINE
     Dosage: 50,MG,DAILY
     Route: 041
     Dates: start: 20170919, end: 20170919
  89. DIPHENHYDRAMINE. [Concomitant]
     Active Substance: DIPHENHYDRAMINE
     Dosage: 25,MG,DAILY
     Route: 048
     Dates: start: 20170924, end: 20170927

REACTIONS (1)
  - Hypoxia [Recovered/Resolved]

NARRATIVE: CASE EVENT DATE: 20170924
